FAERS Safety Report 6781246-4 (Version None)
Quarter: 2010Q2

REPORT INFORMATION
  Report Type: 
  Country: None (occurrence: None)
  Receive Date: 20100621
  Receipt Date: 20100607
  Transmission Date: 20101027
  Serious: Yes (Other)
  Sender: FDA-Public Use
  Company Number: PHFR2010GB00912

PATIENT
  Sex: Male

DRUGS (2)
  1. EXELON [Suspect]
     Route: 062
  2. EXELON [Suspect]
     Route: 048

REACTIONS (2)
  - SYNCOPE [None]
  - VOMITING [None]
